FAERS Safety Report 8190484-8 (Version None)
Quarter: 2012Q1

REPORT INFORMATION
  Report Type: 
  Country: None (occurrence: None)
  Receive Date: 20120307
  Receipt Date: 20120228
  Transmission Date: 20120608
  Serious: Yes (Death)
  Sender: FDA-Public Use
  Company Number: PHHY2012FR018493

PATIENT
  Age: 84 Year
  Sex: Female

DRUGS (8)
  1. AMOXICILLIN [Suspect]
     Indication: RENAL FAILURE
     Dosage: 1 G, QD
     Route: 058
     Dates: start: 20111110, end: 20111111
  2. NICARDIPINE HYDROCHLORIDE [Concomitant]
     Dosage: 50 MG
  3. LEVOTHYROXINE SODIUM [Concomitant]
     Dosage: 50 UG
  4. MIANSERIN [Concomitant]
     Dosage: 30 MG
  5. OXAZEPAM [Concomitant]
     Dosage: 10 MG
  6. MEMANTINE HYDROCHLORIDE [Concomitant]
     Dosage: 10 MG
  7. ALLOPURINOL [Concomitant]
     Dosage: 200 MG
  8. HALDOL [Concomitant]
     Dosage: 5 MG/ML

REACTIONS (2)
  - INCORRECT ROUTE OF DRUG ADMINISTRATION [None]
  - SHOCK [None]
